FAERS Safety Report 7268138-1 (Version None)
Quarter: 2011Q1

REPORT INFORMATION
  Report Type: 
  Country: None (occurrence: None)
  Receive Date: 20110201
  Receipt Date: 20110124
  Transmission Date: 20110831
  Serious: Yes (Other)
  Sender: FDA-Public Use
  Company Number: FR-JNJFOC-20110106955

PATIENT
  Sex: Male

DRUGS (2)
  1. REMICADE [Suspect]
     Indication: RHEUMATOID ARTHRITIS
     Dosage: 3 DOSES ON UNSPECIFIED DATES
     Route: 042
  2. REMICADE [Suspect]
     Dosage: 4TH DOSE
     Route: 042

REACTIONS (3)
  - GENERALISED ERYTHEMA [None]
  - INFUSION RELATED REACTION [None]
  - RESPIRATORY DISORDER [None]
